FAERS Safety Report 5300565-1 (Version None)
Quarter: 2007Q2

REPORT INFORMATION
  Report Type: 
  Country: None (occurrence: None)
  Receive Date: 20070418
  Receipt Date: 20070416
  Transmission Date: 20071010
  Serious: Yes (Other)
  Sender: FDA-Public Use
  Company Number: US-GLAXOSMITHKLINE-A0644378A

PATIENT
  Age: 25 Year
  Sex: Female

DRUGS (2)
  1. ONDANSETRON [Suspect]
     Dosage: 8MG AS REQUIRED
     Route: 048
     Dates: start: 20070312
  2. NO CONCURRENT MEDICATION [Concomitant]

REACTIONS (2)
  - ABORTION INDUCED [None]
  - DRUG EXPOSURE DURING PREGNANCY [None]
